FAERS Safety Report 15239485 (Version 1)
Quarter: 2018Q3

REPORT INFORMATION
  Report Type: Spontaneous
  Country: FR (occurrence: FR)
  Receive Date: 20180803
  Receipt Date: 20180803
  Transmission Date: 20181010
  Serious: Yes (Life-Threatening, Hospitalization)
  Sender: FDA-Public Use
  Company Number: FR-TEVA-2018-FR-934894

PATIENT
  Age: 70 Year
  Sex: Female
  Weight: 58.5 kg

DRUGS (7)
  1. METHOTREXATE. [Suspect]
     Active Substance: METHOTREXATE
     Indication: RHEUMATIC DISORDER
     Dosage: 20 MILLIGRAM DAILY;
     Route: 048
     Dates: start: 20160920, end: 20161005
  2. HEPSERA 10 MG, COMPRIM? [Concomitant]
  3. TAHOR [Concomitant]
     Active Substance: ATORVASTATIN CALCIUM
  4. KALEORID LP 600 MG, COMPRIM? ? LIB?RATION PROLONG?E [Concomitant]
  5. ZEFFIX 100 MG, COMPRIM? PELLICUL? [Concomitant]
     Route: 065
  6. AXELER 20 MG/5 MG, COMPRIM? PELLICUL? [Concomitant]
  7. ATENOLOL. [Concomitant]
     Active Substance: ATENOLOL
     Route: 065

REACTIONS (6)
  - Pyrexia [Recovered/Resolved]
  - Agranulocytosis [Recovered/Resolved]
  - Dehydration [Recovered/Resolved]
  - Thrombocytopenia [Recovered/Resolved]
  - Acute kidney injury [Recovered/Resolved]
  - Mucosal inflammation [Recovered/Resolved]

NARRATIVE: CASE EVENT DATE: 20160920
